FAERS Safety Report 18830774 (Version 3)
Quarter: 2021Q1

REPORT INFORMATION
  Report Type: Spontaneous
  Country: AT (occurrence: AT)
  Receive Date: 20210203
  Receipt Date: 20210322
  Transmission Date: 20210419
  Serious: Yes (Death, Hospitalization, Other)
  Sender: FDA-Public Use
  Company Number: AT-ASTELLAS-2021US003476

PATIENT
  Age: 1 Day
  Sex: Female

DRUGS (7)
  1. ADVAGRAF [Suspect]
     Active Substance: TACROLIMUS
     Dosage: 7 MG, 1 (UNKNOWN FREQUENCY)
     Route: 064
  2. FERRETAB [FERROUS FUMARATE] [Concomitant]
     Indication: IRON DEFICIENCY
     Route: 064
     Dates: start: 20190122
  3. ADVAGRAF [Suspect]
     Active Substance: TACROLIMUS
     Indication: RENAL TRANSPLANT
     Dosage: UNK UNK, UNKNOWN FREQ.
     Route: 064
  4. MAGNESIUM VERLA [MAGNESIUM] [Concomitant]
     Indication: PRODUCT USED FOR UNKNOWN INDICATION
     Dosage: 1 UNK, ONCE DAILY
     Route: 064
     Dates: start: 2014
  5. OLEOVIT D3 [Concomitant]
     Active Substance: CHOLECALCIFEROL
     Indication: VITAMIN D DEFICIENCY
     Route: 064
     Dates: start: 2004
  6. APREDNISLON [Concomitant]
     Active Substance: PREDNISOLONE
     Indication: RENAL TRANSPLANT
     Route: 064
     Dates: start: 2005
  7. ALDOMETIL [Concomitant]
     Active Substance: METHYLDOPA
     Indication: HYPERTENSION
     Route: 064
     Dates: start: 20200124, end: 20201014

REACTIONS (2)
  - Growth retardation [Fatal]
  - Foetal monitoring abnormal [Unknown]

NARRATIVE: CASE EVENT DATE: 20200427
